FAERS Safety Report 7344496-4 (Version None)
Quarter: 2011Q1

REPORT INFORMATION
  Report Type: 
  Country: None (occurrence: None)
  Receive Date: 20110310
  Receipt Date: 20110127
  Transmission Date: 20110831
  Serious: Yes (Hospitalization)
  Sender: FDA-Public Use
  Company Number: US-BAYER-2011-021232

PATIENT
  Sex: Female
  Weight: 68.027 kg

DRUGS (5)
  1. YASMIN [Suspect]
     Dosage: UNK
     Dates: start: 20030211, end: 20090527
  2. OCELLA [Suspect]
     Dosage: UNK
     Dates: start: 20030211, end: 20090527
  3. LEVOTHYROXINE [Concomitant]
     Indication: HYPOTHYROIDISM
     Dosage: UNK
  4. ONE-A-DAY [MINERALS NOS,VITAMINS NOS] [Concomitant]
  5. FISH OIL [Concomitant]

REACTIONS (6)
  - CHOLELITHIASIS [None]
  - CHOLECYSTITIS CHRONIC [None]
  - CHOLECYSTITIS ACUTE [None]
  - SCAR [None]
  - EMOTIONAL DISTRESS [None]
  - CHEST PAIN [None]
